FAERS Safety Report 8885766 (Version 1)
Quarter: 2012Q4

REPORT INFORMATION
  Report Type: 
  Country: US (occurrence: US)
  Receive Date: 20121101
  Receipt Date: 20121101
  Transmission Date: 20130627
  Serious: Yes (Other)
  Sender: FDA-Public Use
  Company Number: PHEH2012US021305

PATIENT
  Sex: Female

DRUGS (2)
  1. GILENYA [Suspect]
     Dosage: 0.5 mg, QD
     Route: 048
     Dates: start: 20111220
  2. GILENYA [Suspect]
     Dosage: 0.5 mg, QW3
     Route: 048

REACTIONS (3)
  - Cellulitis [Unknown]
  - Musculoskeletal stiffness [Unknown]
  - Back pain [Unknown]
